FAERS Safety Report 15978325 (Version 2)
Quarter: 2019Q1

REPORT INFORMATION
  Report Type: Report from Study
  Country: ZA (occurrence: ZA)
  Receive Date: 20190219
  Receipt Date: 20190315
  Transmission Date: 20190418
  Serious: Yes (Life-Threatening, Hospitalization, Disabling, Other)
  Sender: FDA-Public Use
  Company Number: ZA-SA-2018SA249353

PATIENT
  Age: 69 Year
  Sex: Female

DRUGS (9)
  1. TOUJEO [Suspect]
     Active Substance: INSULIN GLARGINE
     Dosage: 28 U, QD
     Dates: start: 20180804
  2. INSULIN GLULISINE [Suspect]
     Active Substance: INSULIN GLULISINE
     Dosage: 16 IU, TID
     Dates: start: 20181022
  3. TOUJEO [Suspect]
     Active Substance: INSULIN GLARGINE
     Dosage: 34 U, AT NIGHT TIME
     Dates: start: 20180904
  4. TOUJEO [Suspect]
     Active Substance: INSULIN GLARGINE
     Dosage: 60 U, HS
     Dates: start: 20180801
  5. EPITEC [Concomitant]
     Active Substance: LAMOTRIGINE
     Dosage: 100 MG, BID
     Route: 065
  6. AUSTELL-LISINOPRIL [LISINOPRIL DIHYDRATE] [Concomitant]
     Dosage: 20 MG
     Route: 065
     Dates: start: 20180801
  7. DEGRANOL [Concomitant]
     Active Substance: CARBAMAZEPINE
     Dosage: 200 MG, TID
     Route: 065
     Dates: start: 20180801
  8. AUSTELL-AMLODIPINE [Concomitant]
     Dosage: 5 MG, QD
     Dates: start: 20180801
  9. GLUCOPHAGE [Concomitant]
     Active Substance: METFORMIN HYDROCHLORIDE
     Dosage: 1000 MG, QD (BB)
     Route: 065
     Dates: start: 20180804

REACTIONS (10)
  - Epilepsy [Recovered/Resolved]
  - Blood glucose increased [Not Recovered/Not Resolved]
  - Hyperglycaemia [Not Recovered/Not Resolved]
  - Headache [Not Recovered/Not Resolved]
  - Fatigue [Not Recovered/Not Resolved]
  - Somogyi phenomenon [Not Recovered/Not Resolved]
  - Dementia [Not Recovered/Not Resolved]
  - Tremor [Not Recovered/Not Resolved]
  - Infection [Not Recovered/Not Resolved]
  - Dementia [Not Recovered/Not Resolved]

NARRATIVE: CASE EVENT DATE: 20180904
